FAERS Safety Report 12728811 (Version 6)
Quarter: 2019Q1

REPORT INFORMATION
  Report Type: Spontaneous
  Country: US (occurrence: US)
  Receive Date: 20160909
  Receipt Date: 20190207
  Transmission Date: 20190417
  Serious: Yes (Hospitalization)
  Sender: FDA-Public Use
  Company Number: US-ACTELION-A-US2016-141674

PATIENT
  Age: 43 Year
  Sex: Female
  Weight: 56.69 kg

DRUGS (7)
  1. UPTRAVI [Suspect]
     Active Substance: SELEXIPAG
     Indication: PULMONARY HYPERTENSION
     Dosage: 1000 MCG, BID
     Route: 048
     Dates: start: 20160510
  2. UPTRAVI [Suspect]
     Active Substance: SELEXIPAG
     Dosage: 1600 MCG, BID
     Route: 048
  3. ADCIRCA [Concomitant]
     Active Substance: TADALAFIL
  4. COUMADIN [Concomitant]
     Active Substance: WARFARIN SODIUM
  5. LETAIRIS [Concomitant]
     Active Substance: AMBRISENTAN
  6. UPTRAVI [Suspect]
     Active Substance: SELEXIPAG
     Dosage: UNK
     Route: 048
  7. OPSUMIT [Suspect]
     Active Substance: MACITENTAN
     Indication: PULMONARY HYPERTENSION
     Dosage: 10 MG, QD
     Route: 048
     Dates: start: 20150501

REACTIONS (9)
  - Hospitalisation [Unknown]
  - Systemic lupus erythematosus [Unknown]
  - Decreased appetite [Unknown]
  - Sinusitis [Unknown]
  - Loss of consciousness [Unknown]
  - Blood creatine increased [Unknown]
  - Pain in jaw [Unknown]
  - Pulmonary arterial pressure increased [Unknown]
  - Dizziness [Unknown]
